FAERS Safety Report 4865727-6 (Version None)
Quarter: 2005Q4

REPORT INFORMATION
  Report Type: 
  Country: None (occurrence: None)
  Receive Date: 20051220
  Receipt Date: 20051212
  Transmission Date: 20060501
  Serious: Yes (Other)
  Sender: FDA-Public Use
  Company Number: 27872

PATIENT
  Age: 55 Year
  Sex: Male

DRUGS (1)
  1. ALDARA [Suspect]
     Indication: BASAL CELL CARCINOMA
     Dosage: (1 SACHET, 5 IN 1 WEEK(S))
     Route: 061
     Dates: start: 20050801, end: 20050831

REACTIONS (3)
  - APPLICATION SITE INFLAMMATION [None]
  - HYPERTROPHIC SCAR [None]
  - KELOID SCAR [None]
